FAERS Safety Report 4402772-9 (Version None)
Quarter: 2004Q3

REPORT INFORMATION
  Report Type: 
  Country: None (occurrence: None)
  Receive Date: 20040720
  Receipt Date: 20040720
  Transmission Date: 20050211
  Serious: Yes (Life-Threatening)
  Sender: FDA-Public Use
  Company Number: None

PATIENT
  Age: 36 Year
  Sex: Female
  Weight: 92.9874 kg

DRUGS (1)
  1. DROTRECOGIN ALFA 5 MG VIALS LILLY [Suspect]
     Indication: SEPSIS
     Dosage: 24 MCG/KG IV
     Route: 042
     Dates: start: 20040615, end: 20040615

REACTIONS (3)
  - CARDIAC ARREST [None]
  - CEREBRAL ISCHAEMIA [None]
  - HAEMODIALYSIS [None]
